FAERS Safety Report 8674735 (Version 4)
Quarter: 2012Q4

REPORT INFORMATION
  Report Type: 
  Country: JP (occurrence: JP)
  Receive Date: 20120720
  Receipt Date: 20121217
  Transmission Date: 20130627
  Serious: Yes (Hospitalization, Other)
  Sender: FDA-Public Use
  Company Number: JP-JNJFOC-20120707653

PATIENT
  Age: 9 Year
  Sex: Male
  Weight: 29 kg

DRUGS (12)
  1. REMICADE [Suspect]
     Indication: GRAFT VERSUS HOST DISEASE
     Route: 042
     Dates: start: 20111015
  2. METHOTREXATE [Suspect]
     Indication: PROPHYLAXIS AGAINST GRAFT VERSUS HOST DISEASE
     Route: 065
  3. CELLCEPT [Concomitant]
     Indication: GRAFT VERSUS HOST DISEASE
     Route: 048
     Dates: start: 20111019
  4. MICARDIS [Concomitant]
     Indication: HYPERTENSION
     Route: 048
     Dates: start: 20110419
  5. URSO [Concomitant]
     Indication: GRAFT VERSUS HOST DISEASE IN LIVER
     Route: 048
     Dates: start: 20110903
  6. GASTER [Concomitant]
     Indication: PROPHYLAXIS AGAINST GASTROINTESTINAL ULCER
     Route: 042
     Dates: start: 20110905, end: 20120506
  7. SOLU-MEDROL [Concomitant]
     Indication: PROPHYLAXIS AGAINST GRAFT VERSUS HOST DISEASE
     Route: 042
     Dates: start: 20110915, end: 20120304
  8. PROGRAF [Concomitant]
     Indication: PROPHYLAXIS AGAINST GRAFT VERSUS HOST DISEASE
     Route: 065
     Dates: start: 20110915
  9. FUNGUARD [Concomitant]
     Indication: FUNGAL INFECTION
     Route: 065
     Dates: start: 20111005, end: 20120507
  10. ADENOSINE [Concomitant]
     Indication: CYTOMEGALOVIRUS INFECTION
     Route: 065
     Dates: start: 20111005, end: 20120120
  11. ALL OTHER THERAPEUTICS [Concomitant]
     Indication: ANTIBIOTIC THERAPY
     Route: 048
     Dates: start: 20101124
  12. GRANISETRON [Concomitant]
     Indication: GASTROINTESTINAL DISORDER
     Route: 065
     Dates: start: 20110906, end: 20111026

REACTIONS (3)
  - Pneumatosis intestinalis [Recovered/Resolved]
  - Haematochezia [Recovered/Resolved]
  - Chest pain [Unknown]
